FAERS Safety Report 23958333 (Version 1)
Quarter: 2024Q2

REPORT INFORMATION
  Report Type: Spontaneous
  Country: GR (occurrence: GR)
  Receive Date: 20240610
  Receipt Date: 20240610
  Transmission Date: 20240716
  Serious: Yes (Other)
  Sender: FDA-Public Use
  Company Number: None

PATIENT
  Age: 45 Year
  Sex: Male
  Weight: 114 kg

DRUGS (20)
  1. LIPIDIL [Suspect]
     Active Substance: FENOFIBRATE
     Indication: Coronary artery disease
     Dosage: 1 DOSAGE FORM, QD (1 PILL AT NIGHT)
     Route: 065
  2. LIPIDIL [Suspect]
     Active Substance: FENOFIBRATE
     Indication: Coronary artery bypass
  3. LIPIDIL [Suspect]
     Active Substance: FENOFIBRATE
     Indication: Stenosis
  4. LIPIDIL [Suspect]
     Active Substance: FENOFIBRATE
     Indication: Coronary angioplasty
  5. LIPIDIL [Suspect]
     Active Substance: FENOFIBRATE
     Indication: Hyperlipidaemia
  6. LIPITOR [Suspect]
     Active Substance: ATORVASTATIN CALCIUM
     Indication: Coronary artery disease
     Dosage: 1 DOSAGE FORM, QD (1 PILL AT NIGHT)
     Route: 065
  7. LIPITOR [Suspect]
     Active Substance: ATORVASTATIN CALCIUM
     Indication: Hyperlipidaemia
  8. LIPITOR [Suspect]
     Active Substance: ATORVASTATIN CALCIUM
     Indication: Stenosis
  9. LIPITOR [Suspect]
     Active Substance: ATORVASTATIN CALCIUM
     Indication: Coronary angioplasty
  10. LIPITOR [Suspect]
     Active Substance: ATORVASTATIN CALCIUM
     Indication: Coronary artery bypass
  11. LIPITOR [Suspect]
     Active Substance: ATORVASTATIN CALCIUM
     Indication: Coronary artery disease
     Dosage: 1 DOSAGE FORM, QD (1 PILL AT NIGHT)
     Route: 065
  12. LIPITOR [Suspect]
     Active Substance: ATORVASTATIN CALCIUM
     Indication: Hyperlipidaemia
  13. LIPITOR [Suspect]
     Active Substance: ATORVASTATIN CALCIUM
     Indication: Stenosis
  14. LIPITOR [Suspect]
     Active Substance: ATORVASTATIN CALCIUM
     Indication: Coronary angioplasty
  15. LIPITOR [Suspect]
     Active Substance: ATORVASTATIN CALCIUM
     Indication: Coronary artery bypass
  16. EZETIMIBE\ROSUVASTATIN ZINC [Suspect]
     Active Substance: EZETIMIBE\ROSUVASTATIN ZINC
     Indication: Coronary angioplasty
     Dosage: 1 DOSAGE FORM, QD (1 PILL AT NIGHT )
     Route: 065
  17. EZETIMIBE\ROSUVASTATIN ZINC [Suspect]
     Active Substance: EZETIMIBE\ROSUVASTATIN ZINC
     Indication: Coronary artery bypass
  18. EZETIMIBE\ROSUVASTATIN ZINC [Suspect]
     Active Substance: EZETIMIBE\ROSUVASTATIN ZINC
     Indication: Stenosis
  19. EZETIMIBE\ROSUVASTATIN ZINC [Suspect]
     Active Substance: EZETIMIBE\ROSUVASTATIN ZINC
     Indication: Coronary artery disease
  20. EZETIMIBE\ROSUVASTATIN ZINC [Suspect]
     Active Substance: EZETIMIBE\ROSUVASTATIN ZINC
     Indication: Hyperlipidaemia

REACTIONS (4)
  - Myalgia [Recovered/Resolved]
  - Hepatic enzyme increased [Recovered/Resolved]
  - Asthenia [Recovered/Resolved]
  - Arthralgia [Recovered/Resolved]

NARRATIVE: CASE EVENT DATE: 20220330
